FAERS Safety Report 12366530 (Version 1)
Quarter: 2016Q2

REPORT INFORMATION
  Report Type: Spontaneous
  Country: DE (occurrence: DE)
  Receive Date: 20160513
  Receipt Date: 20160513
  Transmission Date: 20160815
  Serious: Yes (Other)
  Sender: FDA-Public Use
  Company Number: DE-LABORATOIRE HRA PHARMA-1052169

PATIENT
  Sex: Female

DRUGS (1)
  1. ELLA [Suspect]
     Active Substance: ULIPRISTAL ACETATE
     Route: 048
     Dates: start: 20160430, end: 20160430

REACTIONS (6)
  - Tinnitus [None]
  - Back pain [None]
  - Dizziness [None]
  - Thrombosis [None]
  - Inappropriate schedule of drug administration [None]
  - Diarrhoea [None]

NARRATIVE: CASE EVENT DATE: 20160430
